FAERS Safety Report 5050726-4 (Version None)
Quarter: 2006Q3

REPORT INFORMATION
  Report Type: 
  Country: None (occurrence: None)
  Receive Date: 20060713
  Receipt Date: 20060710
  Transmission Date: 20061208
  Serious: Yes (Hospitalization)
  Sender: FDA-Public Use
  Company Number: FR-BRISTOL-MYERS SQUIBB COMPANY-13436712

PATIENT
  Sex: Female

DRUGS (4)
  1. BLEOMYCIN SULFATE [Suspect]
     Indication: HODGKIN'S DISEASE
     Route: 042
     Dates: start: 20000211, end: 20000615
  2. VELBE [Suspect]
     Indication: HODGKIN'S DISEASE
     Dates: start: 20000211, end: 20000615
  3. FARMORUBICIN [Suspect]
     Indication: HODGKIN'S DISEASE
     Dates: start: 20000211, end: 20000615
  4. PREDNISONE TAB [Concomitant]
     Indication: HODGKIN'S DISEASE
     Dates: start: 20000211, end: 20000615

REACTIONS (4)
  - ABORTION SPONTANEOUS [None]
  - DRUG EXPOSURE DURING PREGNANCY [None]
  - INTRA-UTERINE DEATH [None]
  - PREGNANCY [None]
